FAERS Safety Report 4325026-8 (Version None)
Quarter: 2004Q1

REPORT INFORMATION
  Report Type: 
  Country: None (occurrence: None)
  Receive Date: 20040326
  Receipt Date: 20040326
  Transmission Date: 20041129
  Serious: Yes (Other)
  Sender: FDA-Public Use
  Company Number: None

PATIENT
  Age: 56 Year
  Sex: Female
  Weight: 54.8852 kg

DRUGS (1)
  1. RITUXAN [Suspect]
     Indication: NON-HODGKIN'S LYMPHOMA
     Dosage: 539 MG QWEEK IV
     Route: 042
     Dates: start: 20040304, end: 20040318

REACTIONS (5)
  - BURNING SENSATION [None]
  - DYSKINESIA [None]
  - ERYTHEMA [None]
  - INFLAMMATION [None]
  - PAIN [None]
